FAERS Safety Report 12854489 (Version 1)
Quarter: 2016Q4

REPORT INFORMATION
  Report Type: Spontaneous
  Country: US (occurrence: US)
  Receive Date: 20161017
  Receipt Date: 20161017
  Transmission Date: 20170207
  Serious: No
  Sender: FDA-Public Use
  Company Number: US-BAXTER-2016BAX046511

PATIENT
  Sex: Male
  Weight: 77.18 kg

DRUGS (1)
  1. DIANEAL LOW CALCIUM PERITONEAL DIALYSIS SOLUTION WITH DEXTROSE [Suspect]
     Active Substance: CALCIUM CHLORIDE\DEXTROSE\MAGNESIUM CHLORIDE\SODIUM CHLORIDE\SODIUM LACTATE
     Indication: PERITONEAL DIALYSIS
     Route: 033
     Dates: start: 201311

REACTIONS (7)
  - Balance disorder [Recovering/Resolving]
  - Muscle twitching [Unknown]
  - Memory impairment [Unknown]
  - Fatigue [Unknown]
  - Confusional state [Unknown]
  - Tremor [Recovering/Resolving]
  - Clumsiness [Recovering/Resolving]
